FAERS Safety Report 17649283 (Version 1)
Quarter: 2020Q2

REPORT INFORMATION
  Report Type: Spontaneous
  Country: US (occurrence: US)
  Receive Date: 20200408
  Receipt Date: 20200408
  Transmission Date: 20200713
  Serious: Yes (Other)
  Sender: FDA-Public Use
  Company Number: US-BAUSCH-BL-2020-009532

PATIENT
  Age: 10 Year
  Sex: Female

DRUGS (10)
  1. DEXAMETHASONE. [Suspect]
     Active Substance: DEXAMETHASONE
     Indication: PRODUCT USED FOR UNKNOWN INDICATION
     Route: 065
  2. ACETAMINOPHEN. [Suspect]
     Active Substance: ACETAMINOPHEN
     Indication: HEADACHE
     Dosage: SEVERAL TIMES A WEEK
     Route: 065
  3. ACETAMINOPHEN. [Suspect]
     Active Substance: ACETAMINOPHEN
     Indication: MUSCULAR WEAKNESS
  4. IBUPROFEN. [Suspect]
     Active Substance: IBUPROFEN
     Indication: MUSCULAR WEAKNESS
  5. ACETAMINOPHEN. [Suspect]
     Active Substance: ACETAMINOPHEN
     Indication: VOMITING
  6. DEXAMETHASONE. [Suspect]
     Active Substance: DEXAMETHASONE
     Dosage: WEANED DOSE
     Route: 065
  7. IBUPROFEN. [Suspect]
     Active Substance: IBUPROFEN
     Indication: HEADACHE
     Dosage: SEVERAL TIMES A WEEK
     Route: 065
  8. ACETAMINOPHEN. [Suspect]
     Active Substance: ACETAMINOPHEN
     Indication: GAIT DISTURBANCE
  9. IBUPROFEN. [Suspect]
     Active Substance: IBUPROFEN
     Indication: GAIT DISTURBANCE
  10. IBUPROFEN. [Suspect]
     Active Substance: IBUPROFEN
     Indication: VOMITING

REACTIONS (1)
  - Peptic ulcer [Recovered/Resolved]
